FAERS Safety Report 11652734 (Version 1)
Quarter: 2015Q4

REPORT INFORMATION
  Report Type: Spontaneous
  Country: US (occurrence: None)
  Receive Date: 20151021
  Receipt Date: 20151021
  Transmission Date: 20160304
  Serious: Yes (Life-Threatening, Hospitalization)
  Sender: FDA-Public Use
  Company Number: None

PATIENT
  Age: 79 Year
  Sex: Female

DRUGS (2)
  1. CEFOTETAN [Suspect]
     Active Substance: CEFOTETAN DISODIUM
     Indication: PROPHYLAXIS
     Dosage: 3 DOSES
  2. CEFOTETAN [Suspect]
     Active Substance: CEFOTETAN DISODIUM
     Indication: SURGERY
     Dosage: 3 DOSES

REACTIONS (7)
  - Syncope [None]
  - Bradycardia [None]
  - Haemoglobin decreased [None]
  - Abdominal pain [None]
  - Haematuria [None]
  - Coombs direct test positive [None]
  - Drug specific antibody present [None]

NARRATIVE: CASE EVENT DATE: 20150628
